FAERS Safety Report 9845929 (Version 1)
Quarter: 2013Q4

REPORT INFORMATION
  Report Type: Spontaneous
  Country: US (occurrence: None)
  Receive Date: 20131219
  Receipt Date: 20131219
  Transmission Date: 20140711
  Serious: Yes (Death)
  Sender: FDA-Public Use
  Company Number: 163-20785-13041590

PATIENT
  Age: 65 Year
  Sex: Male

DRUGS (1)
  1. THALOMID (THALIDOMIDE) (100 MILLIGRAM, CAPSULES) [Suspect]
     Indication: MALIGNANT MELANOMA
     Route: 048
     Dates: start: 201209

REACTIONS (2)
  - Metastatic malignant melanoma [None]
  - Disease progression [None]
